FAERS Safety Report 14267835 (Version 1)
Quarter: 2017Q4

REPORT INFORMATION
  Report Type: Spontaneous
  Country: FR (occurrence: FR)
  Receive Date: 20171211
  Receipt Date: 20171211
  Transmission Date: 20180321
  Serious: Yes (Death, Hospitalization, Other)
  Sender: FDA-Public Use
  Company Number: FR-ASTELLAS-2017US052031

PATIENT
  Age: 66 Year
  Sex: Male

DRUGS (2)
  1. TACROLIMUS. [Suspect]
     Active Substance: TACROLIMUS
     Indication: LUNG TRANSPLANT
     Dosage: UNK UNK, UNKNOWN FREQ.
     Route: 065
  2. TACROLIMUS. [Suspect]
     Active Substance: TACROLIMUS
     Dosage: UNK UNK, UNKNOWN FREQUENCY AT 5-7NG/ML
     Route: 065

REACTIONS (6)
  - Pneumonia [Fatal]
  - Alveolar proteinosis [Unknown]
  - Off label use [Unknown]
  - Lung transplant rejection [Recovered/Resolved]
  - Sepsis [Fatal]
  - Device related infection [Fatal]
